FAERS Safety Report 16946417 (Version 1)
Quarter: 2019Q4

REPORT INFORMATION
  Report Type: Spontaneous
  Country: US (occurrence: US)
  Receive Date: 20190830
  Receipt Date: 20190830
  Transmission Date: 20200122
  Serious: No
  Sender: FDA-Public Use
  Company Number: None

PATIENT
  Age: 62 Year
  Sex: Female

DRUGS (1)
  1. SOFOSBUVIR / VELPATASVIR 400-100MG [Suspect]
     Active Substance: SOFOSBUVIR\VELPATASVIR
     Indication: CHRONIC HEPATITIS C
     Route: 048
     Dates: start: 201907, end: 20190823

REACTIONS (5)
  - Headache [None]
  - Hypertension [None]
  - Therapy cessation [None]
  - Product storage error [None]
  - Fatigue [None]

NARRATIVE: CASE EVENT DATE: 20190830
